FAERS Safety Report 21068998 (Version 1)
Quarter: 2022Q3

REPORT INFORMATION
  Report Type: Spontaneous
  Country: CN (occurrence: CN)
  Receive Date: 20220712
  Receipt Date: 20220712
  Transmission Date: 20221027
  Serious: Yes (Other)
  Sender: FDA-Public Use
  Company Number: CN-BAYER-2022A091670

PATIENT
  Age: 53 Year
  Sex: Male
  Weight: 66 kg

DRUGS (3)
  1. STIVARGA [Suspect]
     Active Substance: REGORAFENIB
     Indication: Rectal adenocarcinoma
     Dosage: 160 MG, QD
     Route: 048
     Dates: start: 20200320, end: 20200409
  2. STIVARGA [Suspect]
     Active Substance: REGORAFENIB
     Indication: Rectal adenocarcinoma
     Dosage: 120 MG, QD
     Route: 048
     Dates: start: 20200417, end: 20200417
  3. STIVARGA [Suspect]
     Active Substance: REGORAFENIB
     Indication: Rectal adenocarcinoma
     Dosage: 80 MG, QD
     Route: 048
     Dates: start: 202005

REACTIONS (5)
  - Liver injury [Recovering/Resolving]
  - Blood creatine phosphokinase MB increased [Recovering/Resolving]
  - Blood lactate dehydrogenase increased [Recovering/Resolving]
  - Palmar-plantar erythrodysaesthesia syndrome [Recovering/Resolving]
  - Pain of skin [Recovering/Resolving]

NARRATIVE: CASE EVENT DATE: 20200327
